FAERS Safety Report 10617867 (Version 1)
Quarter: 2014Q4

REPORT INFORMATION
  Report Type: Spontaneous
  Country: SE (occurrence: SE)
  Receive Date: 20141201
  Receipt Date: 20141201
  Transmission Date: 20150529
  Serious: Yes (Disabling)
  Sender: FDA-Public Use
  Company Number: SE-ASTRAZENECA-2014SE87754

PATIENT
  Age: 38 Year
  Sex: Male

DRUGS (1)
  1. XYLOCAINE [Suspect]
     Active Substance: LIDOCAINE HYDROCHLORIDE
     Indication: LOCAL ANAESTHESIA
     Dosage: DOSERING: 4 X 1,8 ML ONCE/SINGLE ADMINISTRATION
     Route: 065
     Dates: start: 20140417, end: 20140417

REACTIONS (1)
  - Anaesthetic complication [Recovered/Resolved with Sequelae]

NARRATIVE: CASE EVENT DATE: 20140417
